FAERS Safety Report 8348707 (Version 5)
Quarter: 2013Q2

REPORT INFORMATION
  Report Type: Spontaneous
  Country: US (occurrence: US)
  Receive Date: 20120123
  Receipt Date: 20130507
  Transmission Date: 20140414
  Serious: Yes (Other)
  Sender: FDA-Public Use
  Company Number: US-ROCHE-784575

PATIENT
  Age: 33 Year
  Sex: Female
  Weight: 54.48 kg

DRUGS (1)
  1. ACCUTANE [Suspect]
     Indication: ACNE
     Dosage: 40 MG ON ODD DAYS AND 80 MG ON EVEN DAYS
     Route: 048
     Dates: start: 19930211, end: 199307

REACTIONS (10)
  - Inflammatory bowel disease [Unknown]
  - Colitis ulcerative [Unknown]
  - Diverticulitis [Unknown]
  - Emotional distress [Unknown]
  - Haemorrhoids [Unknown]
  - Depression [Unknown]
  - Cheilitis [Unknown]
  - Xerosis [Unknown]
  - Dry skin [Unknown]
  - Epistaxis [Unknown]
